FAERS Safety Report 25312408 (Version 2)
Quarter: 2025Q2

REPORT INFORMATION
  Report Type: Spontaneous
  Country: CN (occurrence: CN)
  Receive Date: 20250514
  Receipt Date: 20250522
  Transmission Date: 20250717
  Serious: Yes (Other)
  Sender: KYOWA
  Company Number: CN-KYOWAKIRIN-2025KK008593

PATIENT

DRUGS (7)
  1. CRYSVITA [Suspect]
     Active Substance: BUROSUMAB-TWZA
     Indication: Hypophosphataemia
     Route: 058
  2. CRYSVITA [Suspect]
     Active Substance: BUROSUMAB-TWZA
     Route: 058
  3. CRYSVITA [Suspect]
     Active Substance: BUROSUMAB-TWZA
     Route: 058
  4. CRYSVITA [Suspect]
     Active Substance: BUROSUMAB-TWZA
     Route: 058
  5. CRYSVITA [Suspect]
     Active Substance: BUROSUMAB-TWZA
     Dosage: UNK UNK, 1X/3 WEEKS
     Route: 058
  6. CRYSVITA [Suspect]
     Active Substance: BUROSUMAB-TWZA
     Route: 058
  7. ROCALTROL [Suspect]
     Active Substance: CALCITRIOL
     Indication: Product used for unknown indication
     Dosage: 0.25 UG/D, QD
     Route: 065

REACTIONS (7)
  - Intestinal obstruction [Recovered/Resolved]
  - Illness [Unknown]
  - Pyrexia [Unknown]
  - Blood parathyroid hormone increased [Unknown]
  - Blood phosphorus increased [Recovering/Resolving]
  - Off label use [Unknown]
  - Drug ineffective [Unknown]
